FAERS Safety Report 9926043 (Version 2)
Quarter: 2014Q1

REPORT INFORMATION
  Report Type: Report from Study
  Country: JP (occurrence: JP)
  Receive Date: 20140226
  Receipt Date: 20140331
  Transmission Date: 20141002
  Serious: Yes (Death)
  Sender: FDA-Public Use
  Company Number: JP-PFIZER INC-2014051273

PATIENT
  Age: 76 Year
  Sex: Male
  Weight: 68.5 kg

DRUGS (4)
  1. TEMSIROLIMUS [Suspect]
     Indication: METASTATIC RENAL CELL CARCINOMA
     Dosage: 25 MG, WEEKLY
     Route: 041
     Dates: start: 20111209, end: 20111216
  2. TEMSIROLIMUS [Suspect]
     Dosage: 25 MG, WEEKLY
     Route: 042
     Dates: start: 20120105, end: 20120105
  3. CHLOR-TRIMETON [Concomitant]
     Indication: PROPHYLAXIS
     Dosage: 10 MG, WEEKLY
     Route: 042
     Dates: start: 20111209, end: 20111216
  4. CHLOR-TRIMETON [Concomitant]
     Dosage: 10 MG, WEEKLY
     Dates: start: 20120105

REACTIONS (2)
  - Disease progression [Fatal]
  - Metastatic renal cell carcinoma [Fatal]
